FAERS Safety Report 5169920-7 (Version None)
Quarter: 2006Q4

REPORT INFORMATION
  Report Type: 
  Country: None (occurrence: None)
  Receive Date: 20061212
  Receipt Date: 20060824
  Transmission Date: 20070319
  Serious: Yes (Death, Hospitalization, Other)
  Sender: FDA-Public Use
  Company Number: US-ELI_LILLY_AND_COMPANY-US200608005357

PATIENT
  Age: 60 Year
  Sex: Male

DRUGS (7)
  1. ZYPREXA [Suspect]
     Indication: DEPRESSION
  2. QUETIAPINE FUMARATE [Concomitant]
     Dates: start: 20030101, end: 20040101
  3. RISPERIDONE [Concomitant]
     Dates: start: 20030101, end: 20040101
  4. DOXEPIN HCL [Concomitant]
     Dates: start: 20000101, end: 20040101
  5. FLUOXETINE                              /N/A/ [Concomitant]
     Dates: start: 19990101, end: 20040101
  6. SERTRALINE HCL [Concomitant]
     Dates: start: 20020101, end: 20040101
  7. VENLAFAXINE HCL [Concomitant]
     Dates: start: 20020101, end: 20040101

REACTIONS (7)
  - CONVULSION [None]
  - DEATH [None]
  - DIABETES MELLITUS [None]
  - DIABETIC COMA [None]
  - DIABETIC KETOACIDOSIS [None]
  - INFECTION [None]
  - PANCREATITIS [None]
